FAERS Safety Report 5052167-2 (Version None)
Quarter: 2006Q3

REPORT INFORMATION
  Report Type: 
  Country: None (occurrence: None)
  Receive Date: 20060713
  Receipt Date: 20060713
  Transmission Date: 20061208
  Serious: Yes (Other)
  Sender: FDA-Public Use
  Company Number: None

PATIENT
  Age: 54 Year
  Sex: Female
  Weight: 74.8435 kg

DRUGS (6)
  1. AVELOX [Suspect]
     Indication: SINUSITIS
     Dosage: 400 MG QD PO
     Route: 048
     Dates: start: 20060418, end: 20060418
  2. ATENOLOL [Concomitant]
  3. LIPITOR [Concomitant]
  4. NIASPAN [Concomitant]
  5. RANITIDINE [Concomitant]
  6. NASONEX AS [Concomitant]

REACTIONS (2)
  - ERYTHEMA [None]
  - SWELLING FACE [None]
